FAERS Safety Report 21678358 (Version 1)
Quarter: 2022Q4

REPORT INFORMATION
  Report Type: Spontaneous
  Country: CZ (occurrence: CZ)
  Receive Date: 20221203
  Receipt Date: 20221203
  Transmission Date: 20230113
  Serious: Yes (Hospitalization, Other)
  Sender: FDA-Public Use
  Company Number: CZ-BAXTER-2022BAX013110

PATIENT
  Age: 83 Year
  Sex: Female
  Weight: 78 kg

DRUGS (22)
  1. VINCRISTINE [Suspect]
     Active Substance: VINCRISTINE
     Indication: Diffuse large B-cell lymphoma stage III
     Dosage: 1.4 MG/M2, THERAPY END DATE : ASKU
     Route: 065
     Dates: start: 20220622
  2. VINCRISTINE [Suspect]
     Active Substance: VINCRISTINE
     Dosage: 1 MG/M2, 1Q3W, DURATION :  1 DAY
     Route: 065
     Dates: start: 20220525, end: 20220525
  3. DOXORUBICIN [Suspect]
     Active Substance: DOXORUBICIN
     Indication: Diffuse large B-cell lymphoma stage III
     Dosage: 25 MG/M2, 1Q3W  DURATION : 1 DAY
     Route: 065
     Dates: start: 20220525, end: 20220525
  4. DOXORUBICIN [Suspect]
     Active Substance: DOXORUBICIN
     Dosage: 25 MG/M2  THERAPY END DATE : ASKU
     Route: 065
     Dates: start: 20220622
  5. CYCLOPHOSPHAMIDE [Suspect]
     Active Substance: CYCLOPHOSPHAMIDE
     Indication: Diffuse large B-cell lymphoma stage III
     Dosage: 400 MG/M2 THERAPY START DATE :  ASKU
     Dates: start: 20220622
  6. CYCLOPHOSPHAMIDE [Suspect]
     Active Substance: CYCLOPHOSPHAMIDE
     Dosage: 400 MG/M2, 1Q3W , DURATION : 1 DAY
     Dates: start: 20220525, end: 20220525
  7. SOLU-MEDROL [Suspect]
     Active Substance: METHYLPREDNISOLONE SODIUM SUCCINATE
     Indication: Diffuse large B-cell lymphoma stage II
     Dosage: 80 MILLIGRAM DAILY; 80 MG, QD, DURATION : 1 DAY
     Dates: start: 20220525, end: 20220525
  8. SOLU-MEDROL [Suspect]
     Active Substance: METHYLPREDNISOLONE SODIUM SUCCINATE
     Dosage: 80 MG, THERAPY START DATE :  ASKU
     Dates: start: 20220522
  9. PREDNISONE [Suspect]
     Active Substance: PREDNISONE
     Indication: Diffuse large B-cell lymphoma stage III
     Dosage: 100 MILLIGRAM DAILY; 100 MILLIGRAM, QD, THERAPY END DATE : ASKU
     Dates: start: 20220526
  10. PREDNISONE [Suspect]
     Active Substance: PREDNISONE
     Dosage: 100 MILLIGRAM DAILY; 100 MILLIGRAM, QD, THERAPY END DATE : ASKU
     Dates: start: 20220529
  11. RITUXIMAB [Suspect]
     Active Substance: RITUXIMAB
     Indication: Diffuse large B-cell lymphoma stage III
     Dosage: 375 MG/M2, THERAPY END DATE : ASKU
     Dates: start: 20220622
  12. RITUXIMAB [Suspect]
     Active Substance: RITUXIMAB
     Dosage: 375 MG/M2, 1Q3W, DURATION : 1 DAY
     Dates: start: 20220525, end: 20220525
  13. SODIUM [Concomitant]
     Active Substance: SODIUM
     Indication: Product used for unknown indication
     Dosage: UNK
     Dates: start: 20220610
  14. BISULEPIN [Concomitant]
     Active Substance: BISULEPIN
     Indication: Prophylaxis
     Dosage: 2 MG, DURATION : 1 DAY
     Dates: start: 20220608, end: 20220608
  15. BISULEPIN [Concomitant]
     Active Substance: BISULEPIN
     Dosage: 2 MG, DURATION : 1 DAY
     Dates: start: 20220602, end: 20220602
  16. BISULEPIN [Concomitant]
     Active Substance: BISULEPIN
     Dosage: 2 MG, DURATION : 1 DAY
     Dates: start: 20220525, end: 20220525
  17. PARALEN [Concomitant]
     Indication: Prophylaxis
     Dosage: 1000 MG, DURATION : 1 DAY
     Dates: start: 20220608, end: 20220608
  18. PARALEN [Concomitant]
     Dosage: 1000 MG, DURATION : 1 DAY
     Dates: start: 20220525, end: 20220525
  19. PARALEN [Concomitant]
     Dosage: 1000 MG, DURATION : 1 DAY
     Dates: start: 20220602, end: 20220602
  20. PREDNISONE [Concomitant]
     Active Substance: PREDNISONE
     Indication: Prophylaxis
     Dosage: 100 MG, DURATION : 1 DAYS
     Dates: start: 20220608, end: 20220608
  21. PREDNISONE [Concomitant]
     Active Substance: PREDNISONE
     Dosage: 100 MILLIGRAM DAILY; 100 MG, QD, DURATION : 4 DAYS
     Dates: start: 20220609, end: 20220612
  22. PREDNISONE [Concomitant]
     Active Substance: PREDNISONE
     Dosage: 100 MILLIGRAM DAILY; 100 MG, QD, DURATION : 4 DAYS
     Dates: start: 20220602, end: 20220605

REACTIONS (1)
  - Sepsis [Recovered/Resolved]

NARRATIVE: CASE EVENT DATE: 20220610
